FAERS Safety Report 5321429-3 (Version None)
Quarter: 2007Q2

REPORT INFORMATION
  Report Type: 
  Country: None (occurrence: None)
  Receive Date: 20070510
  Receipt Date: 20070507
  Transmission Date: 20071010
  Serious: Yes (Life-Threatening)
  Sender: FDA-Public Use
  Company Number: JP-BRISTOL-MYERS SQUIBB COMPANY-13772389

PATIENT
  Age: 40 Year
  Sex: Male

DRUGS (6)
  1. ZERIT [Suspect]
     Indication: HIV INFECTION
     Dosage: THERAPY DATES: 1996 TO 2004, THEN 12-APR-2007 TO 17-APR-2007
     Route: 048
     Dates: start: 20040101, end: 20070417
  2. EPIVIR [Suspect]
     Indication: HIV INFECTION
     Dosage: THERAPY DATES: 1996 TO 2004, JUN-2006 TO UNKNOWN, 12-APR-2007 TO 17-APR-2007
     Route: 048
     Dates: start: 20040101, end: 20070417
  3. VIRAMUNE [Suspect]
     Indication: HIV INFECTION
     Route: 048
     Dates: start: 20070412, end: 20070417
  4. STOCRIN [Concomitant]
     Route: 048
     Dates: start: 20060601
  5. VALTREX [Concomitant]
     Route: 048
     Dates: start: 20070415, end: 20070416
  6. ZIAGEN [Concomitant]
     Route: 048
     Dates: start: 20060601

REACTIONS (1)
  - STEVENS-JOHNSON SYNDROME [None]
